FAERS Safety Report 20709306 (Version 1)
Quarter: 2022Q2

REPORT INFORMATION
  Report Type: Spontaneous
  Country: US (occurrence: US)
  Receive Date: 20220414
  Receipt Date: 20220414
  Transmission Date: 20220720
  Serious: Yes (Other)
  Sender: FDA-Public Use
  Company Number: US-BAYER-2022A049150

PATIENT
  Sex: Male

DRUGS (1)
  1. MIRALAX [Suspect]
     Active Substance: POLYETHYLENE GLYCOL 3350
     Indication: Preoperative care
     Dosage: UNK
     Route: 048

REACTIONS (4)
  - Blood urine present [None]
  - Urticaria [None]
  - Tremor [None]
  - Off label use [None]
